FAERS Safety Report 8721956 (Version 6)
Quarter: 2013Q2

REPORT INFORMATION
  Report Type: Spontaneous
  Country: JP (occurrence: JP)
  Receive Date: 20120814
  Receipt Date: 20130606
  Transmission Date: 20140414
  Serious: Yes (Other)
  Sender: FDA-Public Use
  Company Number: JP-AMGEN-JPNSP2012049748

PATIENT
  Age: 64 Year
  Sex: Male
  Weight: 70 kg

DRUGS (7)
  1. VECTIBIX [Suspect]
     Indication: RECTAL CANCER
     Dosage: 350 MG, Q2WK
     Route: 041
     Dates: start: 20120117, end: 20120717
  2. ELPLAT [Concomitant]
     Indication: RECTAL CANCER
     Dosage: 140 MG, Q2WK
     Route: 041
     Dates: start: 20111212
  3. ISOVORIN                           /06682103/ [Concomitant]
     Indication: RECTAL CANCER
     Dosage: 325 MG, Q2WK
     Route: 041
     Dates: start: 20111212
  4. 5-FU                               /00098801/ [Concomitant]
     Indication: RECTAL CANCER
     Dosage: 4000 MG, Q2WK
     Route: 041
     Dates: start: 20111212
  5. 5-FU                               /00098801/ [Concomitant]
     Dosage: 650 MG, Q2WK
     Route: 040
     Dates: start: 20111212
  6. KYTRIL [Concomitant]
     Indication: PROPHYLAXIS OF NAUSEA AND VOMITING
     Dosage: 3 MG, Q2WK
     Route: 041
     Dates: start: 20111212
  7. DECADRON                           /00016002/ [Concomitant]
     Dosage: 6.6 MG, Q2WK
     Route: 041
     Dates: start: 20111212

REACTIONS (1)
  - Interstitial lung disease [Not Recovered/Not Resolved]
